FAERS Safety Report 12637377 (Version 1)
Quarter: 2016Q3

REPORT INFORMATION
  Report Type: Spontaneous
  Country: US (occurrence: US)
  Receive Date: 20160809
  Receipt Date: 20160809
  Transmission Date: 20161109
  Serious: No
  Sender: FDA-Public Use
  Company Number: US-BEH-2016058716

PATIENT
  Sex: Female
  Weight: 119 kg

DRUGS (38)
  1. MAGNESIUM [Concomitant]
     Active Substance: MAGNESIUM
  2. MONTELUKAST SODIUM. [Concomitant]
     Active Substance: MONTELUKAST SODIUM
     Dosage: ORAL TABLET TAKE ONE TABLET BY MOUTH IN THE EVENING
     Dates: start: 20151013
  3. PHENTERMINE HCL [Concomitant]
     Active Substance: PHENTERMINE HYDROCHLORIDE
     Dosage: ORAL TABLET TAKE ONE-HALF TABLET BY MOUTH
     Dates: start: 20140613
  4. PRIVIGEN [Suspect]
     Active Substance: HUMAN IMMUNOGLOBULIN G
     Indication: CHRONIC INFLAMMATORY DEMYELINATING POLYRADICULONEUROPATHY
     Route: 042
     Dates: start: 20151016
  5. DIPHENHYDRAMINE. [Concomitant]
     Active Substance: DIPHENHYDRAMINE
  6. DIAZEPAM. [Concomitant]
     Active Substance: DIAZEPAM
  7. ASPIRIN. [Concomitant]
     Active Substance: ASPIRIN
  8. FOLIC ACID. [Concomitant]
     Active Substance: FOLIC ACID
  9. FAMOTIDINE. [Concomitant]
     Active Substance: FAMOTIDINE
     Dosage: ORAL TABLET; TAKE ONE TABLET BY MOUTH AT BEDTIME
     Dates: start: 20130919
  10. SPIRONOLACTONE. [Concomitant]
     Active Substance: SPIRONOLACTONE
     Dosage: ORAL TABLET
     Dates: start: 20121109
  11. PROAIR HFA [Concomitant]
     Active Substance: ALBUTEROL SULFATE
     Dosage: 180 (90 BASE) MCG/ACT INHALATION AEROSOL SOLUTION INHALE 2 PUFFS AS NEEDED
  12. EPI-PEN AUTOINJECTOR [Concomitant]
  13. TRAMADOL HCL [Concomitant]
     Active Substance: TRAMADOL HYDROCHLORIDE
     Dosage: ORA TABLET. 1-2 TABLETS 4 TIMES DAILY UP TO 8 A DAY
     Dates: start: 20150121
  14. ALLEGRA [Concomitant]
     Active Substance: FEXOFENADINE HYDROCHLORIDE
     Dates: start: 20151103
  15. ERGOCALCIFEROL. [Concomitant]
     Active Substance: ERGOCALCIFEROL
     Dosage: ORAL CAPSULE
     Dates: start: 20141016
  16. SODIUM CHLORIDE. [Concomitant]
     Active Substance: SODIUM CHLORIDE
  17. FLUOXETINE HCL [Concomitant]
     Active Substance: FLUOXETINE HYDROCHLORIDE
     Dosage: ORAL TABLET TAKE THREE TABLETS BY MOUTH
     Dates: start: 20140207
  18. OLANZAPINE. [Concomitant]
     Active Substance: OLANZAPINE
     Dosage: ORAL TABLET
     Dates: start: 20120913
  19. ACETAMINOPHEN. [Concomitant]
     Active Substance: ACETAMINOPHEN
  20. HEPARIN [Concomitant]
     Active Substance: HEPARIN SODIUM
     Dosage: 10 UNITS/ML
  21. FLUCONAZOLE. [Concomitant]
     Active Substance: FLUCONAZOLE
     Dosage: ORAL TABLET; TAKE ONE TABLET BY MOUTH
     Dates: start: 20140625
  22. HYDROXYCHLOROQUINE SULFATE. [Concomitant]
     Active Substance: HYDROXYCHLOROQUINE SULFATE
     Dosage: ORAL TABLET TAKE ONE BY MOUTH
     Dates: start: 20121130
  23. MAGNESIUM [Concomitant]
     Active Substance: MAGNESIUM
     Dosage: ORAL CAPSULE
     Dates: start: 20120712
  24. DIAZEPAM. [Concomitant]
     Active Substance: DIAZEPAM
  25. PROVENTIL HFA [Concomitant]
     Active Substance: ALBUTEROL SULFATE
     Dosage: HFA AER AD
  26. CELECOXIB. [Concomitant]
     Active Substance: CELECOXIB
     Dosage: ORAL CAPSULE; TAKE ONE CAPSULE BY MOUTH
     Dates: start: 20091001
  27. SPIRONOLACTONE. [Concomitant]
     Active Substance: SPIRONOLACTONE
  28. MOMETASONE FUROATE. [Concomitant]
     Active Substance: MOMETASONE FUROATE
     Dosage: GM
  29. BENADRYL [Concomitant]
     Active Substance: DIPHENHYDRAMINE HYDROCHLORIDE
     Dates: start: 20151103
  30. FOLIC ACID. [Concomitant]
     Active Substance: FOLIC ACID
     Dosage: ORAL TABLET TAKE ONE TABLET BY MOUTH
     Dates: start: 20130517
  31. METHOTREXATE. [Concomitant]
     Active Substance: METHOTREXATE
     Dosage: ORAL TABLET
     Dates: start: 20130517
  32. NYSTATIN. [Concomitant]
     Active Substance: NYSTATIN
     Dosage: 100000 UNIT/GM EXTERNAL POWDER APPLY ONE UNIT TWICE DAILY PRN TO AFFECTED AREAS
     Dates: start: 20151013
  33. NEXIUM [Concomitant]
     Active Substance: ESOMEPRAZOLE MAGNESIUM
  34. VITAMIN D2 [Concomitant]
     Active Substance: ERGOCALCIFEROL
  35. CYANOCOBALAMIN INJECTION [Concomitant]
  36. ALEVE [Concomitant]
     Active Substance: NAPROXEN SODIUM
     Dates: start: 20151103
  37. ESOMEPRAZOLE MAGNESIUM. [Concomitant]
     Active Substance: ESOMEPRAZOLE MAGNESIUM
     Dosage: ORAL CAPSULE; TAKE ONE CAPSULE BY MOUTH 1/2 HOUR BEFORE MEAL ON AN EMPTY STOMACH EVERY DAY
     Dates: start: 20100722
  38. FLUVOXAMINE MALEATE. [Concomitant]
     Active Substance: FLUVOXAMINE MALEATE
     Dosage: ORAL TABLET TAKE ONE BY MOUTH AT BEDTIME
     Dates: start: 20100922

REACTIONS (3)
  - Irritability [Unknown]
  - Injection site swelling [Recovered/Resolved]
  - Headache [Unknown]
